FAERS Safety Report 17316210 (Version 2)
Quarter: 2020Q2

REPORT INFORMATION
  Report Type: Spontaneous
  Country: US (occurrence: US)
  Receive Date: 20200124
  Receipt Date: 20200609
  Transmission Date: 20200713
  Serious: No
  Sender: FDA-Public Use
  Company Number: US-SUNOVION-2020SUN000158

PATIENT
  Sex: Female

DRUGS (4)
  1. LONHALA MAGNAIR [Suspect]
     Active Substance: GLYCOPYRROLATE
     Indication: CHRONIC OBSTRUCTIVE PULMONARY DISEASE
  2. QVAR [Concomitant]
     Active Substance: BECLOMETHASONE DIPROPIONATE
     Dosage: 2 PUFFS, IN THE EVENING
  3. SYMBICORT [Concomitant]
     Active Substance: BUDESONIDE\FORMOTEROL FUMARATE DIHYDRATE
     Dosage: 2 PUFFS, IN THE MORNING
  4. LONHALA MAGNAIR [Suspect]
     Active Substance: GLYCOPYRROLATE
     Indication: ASTHMA
     Dosage: 25 ?G/1 ML, BID (60 VIALS, 30 DAYS)
     Route: 055
     Dates: start: 202003

REACTIONS (9)
  - Rash [Unknown]
  - Skin discolouration [Unknown]
  - Pallor [Unknown]
  - Wheezing [Unknown]
  - Off label use [Unknown]
  - Respiration abnormal [Unknown]
  - Insomnia [Unknown]
  - Cough [Unknown]
  - Product dose omission [Unknown]
